FAERS Safety Report 7998418-3 (Version None)
Quarter: 2011Q4

REPORT INFORMATION
  Report Type: 
  Country: None (occurrence: None)
  Receive Date: 20111221
  Receipt Date: 20111010
  Transmission Date: 20120403
  Serious: No
  Sender: FDA-Public Use
  Company Number: US-GLAXOSMITHKLINE-A0948485A

PATIENT
  Age: 63 Year
  Sex: Male

DRUGS (2)
  1. VITAMIN TAB [Concomitant]
  2. LOVAZA [Suspect]
     Indication: BLOOD TRIGLYCERIDES INCREASED
     Dosage: 2CAP TWICE PER DAY
     Route: 048

REACTIONS (1)
  - SKIN ODOUR ABNORMAL [None]
